FAERS Safety Report 4412018-3 (Version None)
Quarter: 2004Q3

REPORT INFORMATION
  Report Type: 
  Country: None (occurrence: None)
  Receive Date: 20040730
  Receipt Date: 20040727
  Transmission Date: 20050211
  Serious: Yes (Hospitalization)
  Sender: FDA-Public Use
  Company Number: PHEH2004US08174

PATIENT

DRUGS (1)
  1. EXELON [Suspect]

REACTIONS (1)
  - COMA [None]
